FAERS Safety Report 11518309 (Version 1)
Quarter: 2015Q3

REPORT INFORMATION
  Report Type: Report from Study
  Country: US (occurrence: US)
  Receive Date: 20150917
  Receipt Date: 20150917
  Transmission Date: 20151125
  Serious: No
  Sender: FDA-Public Use
  Company Number: PHEH2015US004786

PATIENT
  Age: 9 Year
  Sex: Female

DRUGS (2)
  1. ILARIS [Suspect]
     Active Substance: CANAKINUMAB
     Indication: CRYOPYRIN ASSOCIATED PERIODIC SYNDROME
     Dosage: 0.4 ML, (EVERY 8 WEEKS)
     Route: 058
     Dates: start: 20140224
  2. ILARIS [Suspect]
     Active Substance: CANAKINUMAB
     Dosage: 0.4 ML, (EVERY 8 WEEKS)
     Route: 058
     Dates: start: 20150709

REACTIONS (1)
  - Incorrect drug administration duration [Unknown]

NARRATIVE: CASE EVENT DATE: 20140224
